FAERS Safety Report 15011005 (Version 1)
Quarter: 2018Q2

REPORT INFORMATION
  Report Type: Spontaneous
  Country: HR (occurrence: HR)
  Receive Date: 20180614
  Receipt Date: 20180614
  Transmission Date: 20180711
  Serious: Yes (Death)
  Sender: FDA-Public Use
  Company Number: HR-PFIZER INC-2018238275

PATIENT
  Age: 66 Year
  Sex: Male

DRUGS (7)
  1. MEGOSTAT [Concomitant]
     Dosage: DOSAGE FORM: UNSPECIFIED
     Route: 065
  2. ZYTIGA [Suspect]
     Active Substance: ABIRATERONE ACETATE
     Indication: PROSTATE CANCER METASTATIC
     Dosage: 1000 MG, 1X/DAY
     Route: 048
  3. BELOXIM [Concomitant]
     Dosage: DOSAGE FORM: UNSPECIFIED
     Route: 065
  4. MARTEFARIN [Concomitant]
     Active Substance: WARFARIN
     Dosage: DOSAGE FORM: UNSPECIFIED
     Route: 065
  5. DECORTIN [Concomitant]
     Active Substance: PREDNISONE
     Dosage: DOSAGE FORM: UNSPECIFIED
     Route: 065
  6. DOCETAXEL. [Suspect]
     Active Substance: DOCETAXEL
     Indication: PROSTATE CANCER METASTATIC
     Dosage: UNK, CYCLIC (4 CYCLES)
     Route: 065
  7. TRANSTEC [Concomitant]
     Active Substance: BUPRENORPHINE
     Dosage: DOSAGE FORM: UNSPECIFIED
     Route: 065

REACTIONS (1)
  - Hydrothorax [Fatal]
